FAERS Safety Report 11209500 (Version 2)
Quarter: 2015Q2

REPORT INFORMATION
  Report Type: Spontaneous
  Country: FR (occurrence: FR)
  Receive Date: 20150622
  Receipt Date: 20150626
  Transmission Date: 20150821
  Serious: Yes (Hospitalization)
  Sender: FDA-Public Use
  Company Number: FR-009507513-1506FRA010363

PATIENT
  Age: 66 Year
  Sex: Male

DRUGS (15)
  1. ONDANSETRON HYDROCHLORIDE. [Suspect]
     Active Substance: ONDANSETRON HYDROCHLORIDE
     Indication: CHEMOTHERAPY
     Dosage: FIRST CYCLE
     Route: 042
     Dates: start: 20150316, end: 20150316
  2. CISPLATIN. [Suspect]
     Active Substance: CISPLATIN
     Dosage: SECOND CYCLE
     Route: 042
     Dates: start: 20150407, end: 20150407
  3. METHYLPREDNISOLONE SODIUM SUCCINATE. [Suspect]
     Active Substance: METHYLPREDNISOLONE SODIUM SUCCINATE
     Indication: CHEMOTHERAPY
     Dosage: FIRST CYCLE
     Route: 042
     Dates: start: 20150316, end: 20150316
  4. EMEND [Suspect]
     Active Substance: APREPITANT
     Dosage: SECOND CYCLE
     Route: 048
     Dates: start: 20150407, end: 20150407
  5. AMOXICILLIN. [Concomitant]
     Active Substance: AMOXICILLIN
     Indication: TOOTH INFECTION
     Dosage: UNK
     Route: 048
     Dates: start: 20150426
  6. FLUOROURACIL. [Suspect]
     Active Substance: FLUOROURACIL
     Indication: CHEMOTHERAPY
     Dosage: FIRST CYCLE
     Route: 042
     Dates: start: 20150316, end: 20150316
  7. FENOFIBRATE. [Suspect]
     Active Substance: FENOFIBRATE
     Dosage: UNK
     Route: 048
     Dates: start: 20150316
  8. ONDANSETRON HYDROCHLORIDE. [Suspect]
     Active Substance: ONDANSETRON HYDROCHLORIDE
     Dosage: SECOND CYCLE
     Route: 042
     Dates: start: 20150407, end: 20150407
  9. HERCEPTIN [Concomitant]
     Active Substance: TRASTUZUMAB
     Dosage: SECOND CYCLE
     Route: 042
     Dates: start: 20150407, end: 20150407
  10. EMEND [Suspect]
     Active Substance: APREPITANT
     Indication: PROPHYLAXIS OF NAUSEA AND VOMITING
     Dosage: FIRST CYCLE
     Route: 048
     Dates: start: 20150316, end: 20150316
  11. METHYLPREDNISOLONE SODIUM SUCCINATE. [Suspect]
     Active Substance: METHYLPREDNISOLONE SODIUM SUCCINATE
     Dosage: SECOND CYCLE
     Route: 042
     Dates: start: 20150407, end: 20150407
  12. FLUOROURACIL. [Suspect]
     Active Substance: FLUOROURACIL
     Dosage: SECOND CYCLE
     Route: 042
     Dates: start: 20150407, end: 20150407
  13. HERCEPTIN [Concomitant]
     Active Substance: TRASTUZUMAB
     Indication: CHEMOTHERAPY
     Dosage: FIRST CYCLE
     Route: 042
     Dates: start: 20150316, end: 20150316
  14. EMEND [Suspect]
     Active Substance: APREPITANT
     Dosage: THIRD CYCLE
     Route: 048
     Dates: start: 20150428
  15. CISPLATIN. [Suspect]
     Active Substance: CISPLATIN
     Indication: CHEMOTHERAPY
     Dosage: FIRST CYCLE
     Route: 042
     Dates: start: 20150316, end: 20150316

REACTIONS (1)
  - Pancreatitis acute [Recovered/Resolved]

NARRATIVE: CASE EVENT DATE: 20150428
